FAERS Safety Report 6810835-3 (Version None)
Quarter: 2010Q2

REPORT INFORMATION
  Report Type: 
  Country: None (occurrence: None)
  Receive Date: 20100630
  Receipt Date: 20080514
  Transmission Date: 20101027
  Serious: No
  Sender: FDA-Public Use
  Company Number: US-PFIZER INC-2008028858

PATIENT
  Sex: Female
  Weight: 50.35 kg

DRUGS (3)
  1. ESTRING [Suspect]
  2. VITAMINS [Concomitant]
  3. TPN [Concomitant]

REACTIONS (3)
  - ANXIETY [None]
  - BLOOD PRESSURE INCREASED [None]
  - FRUSTRATION [None]
